FAERS Safety Report 16748657 (Version 1)
Quarter: 2019Q3

REPORT INFORMATION
  Report Type: Spontaneous
  Country: DE (occurrence: DE)
  Receive Date: 20190828
  Receipt Date: 20190828
  Transmission Date: 20191005
  Serious: Yes (Other)
  Sender: FDA-Public Use
  Company Number: DE-EMD SERONO-9113215

PATIENT
  Age: 50 Year
  Sex: Female

DRUGS (1)
  1. INTERFERON BETA NOS [Suspect]
     Active Substance: INTERFERON BETA
     Indication: PRODUCT USED FOR UNKNOWN INDICATION

REACTIONS (1)
  - Pyelonephritis [Unknown]
